FAERS Safety Report 7779969-3 (Version None)
Quarter: 2011Q3

REPORT INFORMATION
  Report Type: 
  Country: None (occurrence: None)
  Receive Date: 20110927
  Receipt Date: 20110919
  Transmission Date: 20111222
  Serious: Yes (Other)
  Sender: FDA-Public Use
  Company Number: US-JNJFOC-20110909711

PATIENT
  Sex: Female
  Weight: 90.72 kg

DRUGS (3)
  1. NUCYNTA [Suspect]
     Indication: ARTHRITIS
     Dosage: ONE TABLET EVERY 4 TO 6 HOURS
     Route: 048
     Dates: start: 20110909, end: 20110910
  2. OPANA [Concomitant]
     Indication: PAIN
     Dosage: 30 MG AS NEEDED
     Route: 048
     Dates: start: 20100901
  3. NUCYNTA [Suspect]
     Indication: BONE DISORDER
     Dosage: ONE TABLET EVERY 4 TO 6 HOURS
     Route: 048
     Dates: start: 20110909, end: 20110910

REACTIONS (5)
  - HYPERSENSITIVITY [None]
  - BLOOD PRESSURE INCREASED [None]
  - HEART RATE INCREASED [None]
  - FORMICATION [None]
  - PSYCHOMOTOR HYPERACTIVITY [None]
